FAERS Safety Report 9014180 (Version 1)
Quarter: 2013Q1

REPORT INFORMATION
  Report Type: Spontaneous
  Country: GB (occurrence: GB)
  Receive Date: 20130115
  Receipt Date: 20130115
  Transmission Date: 20140127
  Serious: Yes (Death)
  Sender: FDA-Public Use
  Company Number: PHHY2013GB002671

PATIENT
  Age: 48 Year
  Sex: Male

DRUGS (6)
  1. FLUOXETINE [Suspect]
     Indication: ANXIETY
     Dosage: 60 MG, DAILY
     Route: 048
     Dates: start: 2003
  2. FLUOXETINE [Suspect]
     Indication: DEPRESSION
  3. ZAPONEX [Suspect]
     Dosage: 400 MG, QD
     Route: 048
     Dates: start: 20081124
  4. SULPIRIDE [Concomitant]
     Indication: PSYCHOTIC DISORDER
     Dosage: 600 MG, QD
     Route: 048
     Dates: start: 2005
  5. PREGABALIN [Concomitant]
     Indication: ANXIETY
     Dosage: 100 MG, BID
     Route: 048
     Dates: start: 201007
  6. VENTOLINE EVOHALER [Concomitant]
     Indication: ASTHMA
     Dates: start: 200911

REACTIONS (3)
  - Myocardial infarction [Fatal]
  - Cardiac failure acute [Fatal]
  - Ventricular hypertrophy [Fatal]
